FAERS Safety Report 11835236 (Version 1)
Quarter: 2015Q4

REPORT INFORMATION
  Report Type: Spontaneous
  Country: US (occurrence: US)
  Receive Date: 20151215
  Receipt Date: 20151215
  Transmission Date: 20160305
  Serious: Yes (Hospitalization)
  Sender: FDA-Public Use
  Company Number: US-ACCORD-035977

PATIENT
  Age: 73 Year
  Sex: Female

DRUGS (1)
  1. LISINOPRIL ACCORD [Suspect]
     Active Substance: LISINOPRIL
     Indication: HYPERTENSION
     Dosage: STRENGTH : 20 MG
     Route: 048
     Dates: start: 20151014, end: 201511

REACTIONS (4)
  - Insomnia [Recovered/Resolved]
  - Product substitution issue [Unknown]
  - Rash pruritic [Recovering/Resolving]
  - Herpes zoster [Recovered/Resolved]

NARRATIVE: CASE EVENT DATE: 201510
